FAERS Safety Report 10418014 (Version 1)
Quarter: 2014Q3

REPORT INFORMATION
  Report Type: Spontaneous
  Country: FR (occurrence: FR)
  Receive Date: 20140829
  Receipt Date: 20140829
  Transmission Date: 20150326
  Serious: Yes (Hospitalization, Other)
  Sender: FDA-Public Use
  Company Number: FR-ASTRAZENECA-2014SE63340

PATIENT
  Age: 25378 Day
  Sex: Female

DRUGS (13)
  1. DISCOTRINE [Concomitant]
     Active Substance: NITROGLYCERIN
  2. SMECTA [Concomitant]
     Active Substance: MONTMORILLONITE
  3. ATACAND [Suspect]
     Active Substance: CANDESARTAN CILEXETIL
     Indication: HYPERTENSION
     Route: 048
     Dates: end: 20140802
  4. ISOPTIN [Concomitant]
     Active Substance: VERAPAMIL HYDROCHLORIDE
  5. VOLTARENE [Interacting]
     Active Substance: DICLOFENAC SODIUM
     Dosage: SR, 75 MG TWO TIMES DAILY
     Route: 048
     Dates: start: 20140728, end: 20140802
  6. ACTONEL [Concomitant]
     Active Substance: RISEDRONATE SODIUM
  7. OROCAL [Concomitant]
     Active Substance: CALCIUM CARBONATE
  8. DOLIPRANE [Concomitant]
     Active Substance: ACETAMINOPHEN
     Dates: start: 20140728
  9. PARIET [Concomitant]
     Active Substance: RABEPRAZOLE SODIUM
     Dates: start: 20140728
  10. ACUPAN [Concomitant]
     Active Substance: NEFOPAM HYDROCHLORIDE
     Dates: start: 20140728
  11. VERAPAMIL [Concomitant]
     Active Substance: VERAPAMIL HYDROCHLORIDE
  12. EXELON [Concomitant]
     Active Substance: RIVASTIGMINE TARTRATE
  13. NOVORAPID [Concomitant]
     Active Substance: INSULIN ASPART

REACTIONS (5)
  - Drug interaction [Recovered/Resolved]
  - Humerus fracture [Unknown]
  - Atrioventricular block [Unknown]
  - Renal failure acute [Recovered/Resolved]
  - Diarrhoea [Unknown]

NARRATIVE: CASE EVENT DATE: 20140728
